FAERS Safety Report 4495146-6 (Version None)
Quarter: 2004Q4

REPORT INFORMATION
  Report Type: 
  Country: None (occurrence: None)
  Receive Date: 20041108
  Receipt Date: 20040915
  Transmission Date: 20050328
  Serious: Yes (Hospitalization)
  Sender: FDA-Public Use
  Company Number: FR-NOVOPROD-239382

PATIENT
  Age: 54 Year
  Sex: Female
  Weight: 60 kg

DRUGS (6)
  1. NORDITROPIN SIMPLEXX [Suspect]
     Indication: GROWTH HORMONE DEFICIENCY
     Dosage: .3 MG, QD
     Dates: start: 20030501
  2. HYDROCORTISON [Concomitant]
     Dates: start: 19620101
  3. MINRIN [Concomitant]
     Dates: start: 19620101
  4. LEVOTHYROXINE SODIUM [Concomitant]
     Dates: start: 19620101
  5. ESTROGEN NOS [Concomitant]
     Dates: start: 19620101
  6. TRISEQUENS [Concomitant]
     Dates: start: 19620101

REACTIONS (1)
  - CARPAL TUNNEL SYNDROME [None]
